FAERS Safety Report 19511814 (Version 2)
Quarter: 2021Q3

REPORT INFORMATION
  Report Type: Report from Study
  Country: ZA (occurrence: ZA)
  Receive Date: 20210709
  Receipt Date: 20210720
  Transmission Date: 20211014
  Serious: Yes (Death, Other)
  Sender: FDA-Public Use
  Company Number: NVSC2021ZA137111

PATIENT
  Age: 57 Year
  Sex: Female

DRUGS (4)
  1. KRYXANA [Suspect]
     Active Substance: RIBOCICLIB
     Indication: METASTASES TO LUNG
     Dosage: 400 MG, QD
     Route: 048
     Dates: start: 20210617
  2. KRYXANA [Suspect]
     Active Substance: RIBOCICLIB
     Indication: METASTASES TO BONE
  3. PHENERGAN [Concomitant]
     Active Substance: PROMETHAZINE HYDROCHLORIDE
     Indication: PRODUCT USED FOR UNKNOWN INDICATION
     Dosage: UNK
     Route: 065
  4. KRYXANA [Suspect]
     Active Substance: RIBOCICLIB
     Indication: BREAST CANCER METASTATIC
     Dosage: 600 MG, QD
     Route: 048
     Dates: start: 20210603

REACTIONS (7)
  - Pruritus [Unknown]
  - Pyrexia [Unknown]
  - Dyspnoea [Unknown]
  - Death [Fatal]
  - Pulmonary embolism [Unknown]
  - Chills [Unknown]
  - Rash [Unknown]

NARRATIVE: CASE EVENT DATE: 20210615
